FAERS Safety Report 7701186-3 (Version None)
Quarter: 2011Q3

REPORT INFORMATION
  Report Type: 
  Country: None (occurrence: None)
  Receive Date: 20110822
  Receipt Date: 20110805
  Transmission Date: 20111222
  Serious: Yes (Death, Hospitalization)
  Sender: FDA-Public Use
  Company Number: US-GLAXOSMITHKLINE-A0840131A

PATIENT
  Age: 62 Year
  Sex: Male
  Weight: 113.2 kg

DRUGS (13)
  1. AVANDIA [Suspect]
     Indication: DIABETES MELLITUS
     Dosage: 4MG PER DAY
     Route: 048
     Dates: start: 20050101, end: 20090627
  2. DOXAZOSIN MESYLATE [Concomitant]
  3. FLUTICASONE PROPIONATE [Concomitant]
  4. TOPROL-XL [Concomitant]
  5. NORVASC [Concomitant]
  6. CELLCEPT [Concomitant]
  7. OMEPRAZOLE [Concomitant]
  8. CYCLOSPORINE [Concomitant]
  9. INSULIN [Concomitant]
  10. FENOFIBRATE [Concomitant]
  11. GLIMEPIRIDE [Concomitant]
  12. AVANDAMET [Suspect]
     Indication: TYPE 2 DIABETES MELLITUS
     Route: 048
     Dates: start: 20080101
  13. CLONIDINE [Concomitant]

REACTIONS (6)
  - ISCHAEMIC CARDIOMYOPATHY [None]
  - CARDIAC FAILURE CONGESTIVE [None]
  - SUDDEN CARDIAC DEATH [None]
  - MYOCARDIAL INFARCTION [None]
  - CARDIAC FAILURE ACUTE [None]
  - HEART TRANSPLANT REJECTION [None]
